FAERS Safety Report 8030401-4 (Version None)
Quarter: 2012Q1

REPORT INFORMATION
  Report Type: 
  Country: None (occurrence: None)
  Receive Date: 20120109
  Receipt Date: 20120109
  Transmission Date: 20120608
  Serious: Yes (Death, Other)
  Sender: FDA-Public Use
  Company Number: None

PATIENT
  Age: 44 Year
  Sex: Male
  Weight: 90.718 kg

DRUGS (2)
  1. FENTANYL CITRATE [Suspect]
     Indication: DEATH
     Dosage: 100 MCG
     Route: 041
     Dates: start: 20120103, end: 20120105
  2. FENTANYL CITRATE IV [Concomitant]
     Indication: PAIN
     Dosage: 25 TO 50
     Route: 041
     Dates: start: 20111220, end: 20120103

REACTIONS (5)
  - INTENTIONAL DRUG MISUSE [None]
  - INSOMNIA [None]
  - MOVEMENT DISORDER [None]
  - OVERDOSE [None]
  - EYELID FUNCTION DISORDER [None]
